FAERS Safety Report 16953247 (Version 4)
Quarter: 2019Q4

REPORT INFORMATION
  Report Type: Spontaneous
  Country: IT (occurrence: IT)
  Receive Date: 20191023
  Receipt Date: 20191219
  Transmission Date: 20200122
  Serious: Yes (Other)
  Sender: FDA-Public Use
  Company Number: IT-BEH-2019108292

PATIENT
  Sex: Female
  Weight: 59 kg

DRUGS (3)
  1. PRIVIGEN [Suspect]
     Active Substance: HUMAN IMMUNOGLOBULIN G
     Indication: CHRONIC INFLAMMATORY DEMYELINATING POLYRADICULONEUROPATHY
     Dosage: 15 GRAM
     Route: 042
     Dates: start: 20191008, end: 20191008
  2. PRIVIGEN [Suspect]
     Active Substance: HUMAN IMMUNOGLOBULIN G
     Dosage: 10 GRAM
     Route: 042
     Dates: start: 20191009, end: 20191009
  3. DELTACORTENE [Concomitant]
     Active Substance: PREDNISONE
     Dosage: 5 MILLIGRAM, BID
     Route: 065

REACTIONS (4)
  - Anaphylactoid reaction [Recovered/Resolved]
  - Paraesthesia oral [Recovered/Resolved]
  - Rash [Recovered/Resolved]
  - Vertigo [Recovered/Resolved]

NARRATIVE: CASE EVENT DATE: 20191009
